FAERS Safety Report 4555150-6 (Version None)
Quarter: 2005Q1

REPORT INFORMATION
  Report Type: 
  Country: None (occurrence: None)
  Receive Date: 20050118
  Receipt Date: 20041110
  Transmission Date: 20050727
  Serious: Yes (Life-Threatening, Hospitalization)
  Sender: FDA-Public Use
  Company Number: US-MERCK-0411USA01978

PATIENT
  Age: 37 Year
  Sex: Female

DRUGS (7)
  1. VIOXX [Suspect]
     Indication: COSTOCHONDRITIS
     Route: 048
     Dates: start: 20040801, end: 20041001
  2. AXERT [Concomitant]
     Route: 065
  3. SINGULAIR [Concomitant]
     Route: 048
  4. MAXIFEN [Concomitant]
     Route: 065
  5. FAMOTIDINE [Concomitant]
     Route: 065
  6. ZAPEX [Concomitant]
     Route: 065
  7. PAXIL [Concomitant]
     Route: 065

REACTIONS (3)
  - CHEST PAIN [None]
  - COLITIS ULCERATIVE [None]
  - LOSS OF CONSCIOUSNESS [None]
